FAERS Safety Report 22390181 (Version 1)
Quarter: 2023Q2

REPORT INFORMATION
  Report Type: Spontaneous
  Country: US (occurrence: US)
  Receive Date: 20230531
  Receipt Date: 20230531
  Transmission Date: 20230722
  Serious: No
  Sender: FDA-Public Use
  Company Number: US-PFIZER INC-PV202300094276

PATIENT
  Age: 10 Year
  Sex: Female

DRUGS (2)
  1. OXBRYTA [Suspect]
     Active Substance: VOXELOTOR
     Dosage: 900 MG (300MG/ 3 TABLETS, ONCE DAILY)
     Route: 048
     Dates: start: 20230208, end: 202302
  2. OXBRYTA [Suspect]
     Active Substance: VOXELOTOR
     Dosage: 900 MG (300MG/ 3 TABLETS, ONCE DAILY)
     Route: 048
     Dates: start: 202303

REACTIONS (1)
  - COVID-19 [Recovered/Resolved]
